FAERS Safety Report 7656397-2 (Version None)
Quarter: 2011Q3

REPORT INFORMATION
  Report Type: 
  Country: None (occurrence: None)
  Receive Date: 20110804
  Receipt Date: 20110725
  Transmission Date: 20111222
  Serious: Yes (Hospitalization)
  Sender: FDA-Public Use
  Company Number: US-GLAXOSMITHKLINE-A0939434A

PATIENT
  Age: 52 Year
  Sex: Female
  Weight: 70 kg

DRUGS (5)
  1. TOPOTECAN [Suspect]
     Indication: NON-SMALL CELL LUNG CANCER
     Dosage: 7.2MG CYCLIC
     Route: 042
     Dates: start: 20100218
  2. WARFARIN SODIUM [Concomitant]
     Indication: THROMBOSIS
     Dates: start: 20040701
  3. CEREBYX [Concomitant]
     Dates: start: 20110721
  4. BEVACIZUMAB [Suspect]
     Indication: NON-SMALL CELL LUNG CANCER
     Dosage: 775MG CYCLIC
     Route: 042
     Dates: start: 20100218
  5. LEVETIRACETAM [Concomitant]
     Indication: CONVULSION
     Dates: start: 20090901

REACTIONS (2)
  - STATUS EPILEPTICUS [None]
  - APHASIA [None]
